FAERS Safety Report 15304392 (Version 1)
Quarter: 2018Q3

REPORT INFORMATION
  Report Type: Report from Study
  Country: US (occurrence: US)
  Receive Date: 20180821
  Receipt Date: 20180821
  Transmission Date: 20181010
  Serious: No
  Sender: FDA-Public Use
  Company Number: US-AMGEN INC.-USASP2018103599

PATIENT
  Age: 52 Year
  Sex: Female

DRUGS (3)
  1. MAXALT [Concomitant]
     Active Substance: RIZATRIPTAN BENZOATE
     Indication: HEADACHE
     Dosage: 10 MG, UNK
     Dates: start: 20180726
  2. AIMOVIG [Suspect]
     Active Substance: ERENUMAB-AOOE
     Indication: MIGRAINE
     Dosage: 70 MG, UNK
     Route: 058
     Dates: start: 20180726
  3. IBUPROFEN. [Concomitant]
     Active Substance: IBUPROFEN
     Indication: HEADACHE
     Dosage: 800 MG, UNK
     Dates: start: 20180726

REACTIONS (2)
  - Photophobia [Unknown]
  - Nausea [Unknown]

NARRATIVE: CASE EVENT DATE: 20180726
